FAERS Safety Report 13693972 (Version 1)
Quarter: 2017Q2

REPORT INFORMATION
  Report Type: Spontaneous
  Country: US (occurrence: US)
  Receive Date: 20170627
  Receipt Date: 20170627
  Transmission Date: 20170830
  Serious: Yes (Disabling)
  Sender: FDA-Public Use
  Company Number: None

PATIENT
  Age: 62 Year
  Sex: Female
  Weight: 58.97 kg

DRUGS (7)
  1. ANASTROZOLE (GEN FOR ARIMIDEX) 1MG [Suspect]
     Active Substance: ANASTROZOLE
     Indication: BREAST CANCER
     Route: 048
     Dates: start: 20170428, end: 20170602
  2. VITAMIN D [Concomitant]
     Active Substance: CHOLECALCIFEROL
  3. DHA [Concomitant]
     Active Substance: DIETARY SUPPLEMENT
  4. TURMERIC [Concomitant]
     Active Substance: HERBALS\TURMERIC
  5. FISH OIL [Concomitant]
     Active Substance: FISH OIL
  6. PROBIOTIC [Concomitant]
     Active Substance: PROBIOTICS NOS
  7. VITAMIN C [Concomitant]
     Active Substance: ASCORBIC ACID

REACTIONS (4)
  - Cataract [None]
  - Dry eye [None]
  - Retinal haemorrhage [None]
  - Photopsia [None]

NARRATIVE: CASE EVENT DATE: 201705
